FAERS Safety Report 18158032 (Version 1)
Quarter: 2020Q3

REPORT INFORMATION
  Report Type: Spontaneous
  Country: US (occurrence: US)
  Receive Date: 20200817
  Receipt Date: 20200817
  Transmission Date: 20201103
  Serious: No
  Sender: FDA-Public Use
  Company Number: US-MEDEXUS PHARMA, INC.-2020MED00059

PATIENT
  Age: 42 Year
  Sex: Female
  Weight: 99.77 kg

DRUGS (5)
  1. RASUVO [Suspect]
     Active Substance: METHOTREXATE SODIUM
     Indication: ILEOSTOMY
     Dosage: 50 MG, 1X/WEEK IN MONDAYS INJECTED INTO THIGHS
     Dates: start: 202003
  2. REMICADE [Concomitant]
     Active Substance: INFLIXIMAB
     Dosage: UNK, 1X/MONTH
  3. DEPAKENE [Concomitant]
     Active Substance: VALPROIC ACID
     Dosage: UNK, 2X/DAY
  4. AIMOVIG [Concomitant]
     Active Substance: ERENUMAB-AOOE
     Dosage: UNK, 1X/MONTH
  5. RASUVO [Suspect]
     Active Substance: METHOTREXATE SODIUM
     Indication: CROHN^S DISEASE
     Dosage: 50 MG, 1X/WEEK IN MONDAYS INJECTED INTO STOMACH
     Dates: start: 20200309, end: 2020

REACTIONS (3)
  - Injection site pain [Recovered/Resolved]
  - Off label use [Not Recovered/Not Resolved]
  - Accidental exposure to product [Not Recovered/Not Resolved]

NARRATIVE: CASE EVENT DATE: 202003
